FAERS Safety Report 6873070-9 (Version None)
Quarter: 2010Q3

REPORT INFORMATION
  Report Type: 
  Country: None (occurrence: None)
  Receive Date: 20100723
  Receipt Date: 20081128
  Transmission Date: 20110219
  Serious: Yes (Other)
  Sender: FDA-Public Use
  Company Number: US-PFIZER INC-2008094140

PATIENT
  Sex: Male
  Weight: 100 kg

DRUGS (3)
  1. CHANTIX [Suspect]
     Dates: start: 20081019, end: 20081025
  2. ZYPREXA [Concomitant]
     Indication: TINNITUS
  3. KLONOPIN [Concomitant]
     Indication: TINNITUS

REACTIONS (2)
  - DEPRESSION [None]
  - SUICIDAL IDEATION [None]
